FAERS Safety Report 6427158-7 (Version None)
Quarter: 2009Q4

REPORT INFORMATION
  Report Type: 
  Country: None (occurrence: None)
  Receive Date: 20091104
  Receipt Date: 20091028
  Transmission Date: 20100525
  Serious: Yes (Other)
  Sender: FDA-Public Use
  Company Number: US-GILEAD-2008-0015335

PATIENT
  Sex: Male
  Weight: 77.18 kg

DRUGS (7)
  1. LETAIRIS [Suspect]
     Indication: PULMONARY ARTERIAL HYPERTENSION
     Route: 048
     Dates: start: 20071010, end: 20080206
  2. FOLIC ACID [Concomitant]
     Route: 048
  3. LOTREL [Concomitant]
     Dosage: AMLODIPINE/BENAZEPRIL 5/20MG
     Route: 048
  4. TOPROL-XL [Concomitant]
     Route: 048
  5. LASIX [Concomitant]
  6. HYDROXYUREA [Concomitant]
     Dates: start: 20071201
  7. HYDROXYUREA [Concomitant]

REACTIONS (9)
  - ASCITES [None]
  - ASPARTATE AMINOTRANSFERASE INCREASED [None]
  - BLOOD BILIRUBIN INCREASED [None]
  - CONDITION AGGRAVATED [None]
  - HEPATIC CONGESTION [None]
  - HEPATOMEGALY [None]
  - LIVER FUNCTION TEST ABNORMAL [None]
  - OEDEMA [None]
  - PERICARDIAL EFFUSION [None]
